FAERS Safety Report 9377064 (Version 3)
Quarter: 2013Q4

REPORT INFORMATION
  Report Type: Spontaneous
  Country: FR (occurrence: FR)
  Receive Date: 20130701
  Receipt Date: 20131011
  Transmission Date: 20140711
  Serious: Yes (Hospitalization)
  Sender: FDA-Public Use
  Company Number: FR-VERTEX PHARMACEUTICALS INC-2013-007572

PATIENT
  Age: 62 Year
  Sex: Female

DRUGS (9)
  1. INCIVO [Suspect]
     Indication: CHRONIC HEPATITIS C
     Dosage: 750 MG, QD
     Route: 048
     Dates: start: 20130308, end: 20130517
  2. PEGASYS [Concomitant]
     Dosage: DOSAGE FORM: UNSPECIFIED
     Route: 065
  3. COPEGUS [Concomitant]
     Dosage: 200 MG, UNK
     Route: 065
  4. COPEGUS [Concomitant]
     Dosage: DOSAGE FORM: TABLET
     Route: 065
  5. DEXERYL [Concomitant]
     Dosage: DOSAGE FORM: UNSPECIFIED
     Route: 065
  6. ARANESP [Concomitant]
     Dosage: DOSAGE FORM: SOLUTION FOR INJECTION
     Route: 065
  7. TARDYFERON [Concomitant]
     Dosage: DOSAGE FORM: UNSPECIFIED
     Route: 065
  8. LAROXYL [Concomitant]
     Dosage: DOSAGE FORM: UNSPECIFIED
     Route: 065
  9. XANAX [Concomitant]
     Dosage: DOSAGE FORM: TABLET
     Route: 065

REACTIONS (3)
  - Mucosal inflammation [Unknown]
  - Asthenia [Unknown]
  - Drug reaction with eosinophilia and systemic symptoms [Recovered/Resolved]
